FAERS Safety Report 5094332-4 (Version None)
Quarter: 2006Q3

REPORT INFORMATION
  Report Type: 
  Country: None (occurrence: None)
  Receive Date: 20060830
  Receipt Date: 20060830
  Transmission Date: 20061208
  Serious: Yes (Life-Threatening, Hospitalization)
  Sender: FDA-Public Use
  Company Number: None

PATIENT
  Age: 45 Year
  Sex: Female
  Weight: 70.9 kg

DRUGS (6)
  1. AVELOX [Suspect]
     Indication: EAR INFECTION
     Dosage: 400 MG DAILY PO
     Route: 048
     Dates: start: 20060624, end: 20060627
  2. VYTORIN [Concomitant]
  3. LOFIBRA [Concomitant]
  4. ZOLOFT [Concomitant]
  5. PREMARIN [Concomitant]
  6. LISINOPRIL [Concomitant]

REACTIONS (2)
  - EPISTAXIS [None]
  - HEPATIC FAILURE [None]
